FAERS Safety Report 8613598-4 (Version None)
Quarter: 2012Q3

REPORT INFORMATION
  Report Type: 
  Country: None (occurrence: None)
  Receive Date: 20120823
  Receipt Date: 20120724
  Transmission Date: 20120928
  Serious: No
  Sender: FDA-Public Use
  Company Number: US-009507513-1207USA009704

PATIENT

DRUGS (2)
  1. CELESTONE [Suspect]
     Indication: LIMB DISCOMFORT
     Dosage: UNK
     Route: 030
     Dates: start: 20120427
  2. ZOLOFT [Concomitant]

REACTIONS (4)
  - WEIGHT DECREASED [None]
  - UPPER RESPIRATORY TRACT INFECTION [None]
  - DYSPEPSIA [None]
  - MUSCLE ATROPHY [None]
